FAERS Safety Report 8493751-3 (Version None)
Quarter: 2012Q3

REPORT INFORMATION
  Report Type: 
  Country: None (occurrence: None)
  Receive Date: 20120706
  Receipt Date: 20120628
  Transmission Date: 20120928
  Serious: Yes (Hospitalization)
  Sender: FDA-Public Use
  Company Number: US-ABBOTT-12P-163-0951610-00

PATIENT
  Sex: Female

DRUGS (1)
  1. HUMIRA [Suspect]
     Indication: RHEUMATOID ARTHRITIS
     Route: 058
     Dates: start: 20111001

REACTIONS (5)
  - CARDIOVERSION [None]
  - SKIN DISCOLOURATION [None]
  - THROMBOSIS [None]
  - HERPES ZOSTER [None]
  - LIMB INJURY [None]
